FAERS Safety Report 4995528-X (Version None)
Quarter: 2006Q2

REPORT INFORMATION
  Report Type: 
  Country: None (occurrence: None)
  Receive Date: 20060508
  Receipt Date: 20060113
  Transmission Date: 20061013
  Serious: Yes (Hospitalization)
  Sender: FDA-Public Use
  Company Number: US-ROCHE-432363

PATIENT
  Age: 15 Year
  Sex: Female
  Weight: 52.2 kg

DRUGS (10)
  1. ACCUTANE [Suspect]
     Route: 048
     Dates: start: 19970113, end: 19970408
  2. ACCUTANE [Suspect]
     Dosage: ACCUTANE INCREASED TO 80MG EVERY THIRD DAY.
     Route: 048
     Dates: start: 19970408, end: 19970509
  3. ACCUTANE [Suspect]
     Route: 048
     Dates: start: 19970711, end: 19970810
  4. ACCUTANE [Suspect]
     Route: 048
     Dates: start: 19980223, end: 19980325
  5. ACCUTANE [Suspect]
     Route: 048
     Dates: start: 19980727, end: 19980923
  6. ACCUTANE [Suspect]
     Route: 048
     Dates: start: 20001211, end: 20010215
  7. ACCUTANE [Suspect]
     Dosage: 05 FEBRUARY 2001: NOTED PATIENT IS ON ACCUTANE.
     Route: 048
  8. ACCUTANE [Suspect]
     Dosage: 40MG ONCE DAILY ALTERNATING WITH 80MG EVERY THIRD DAY.
     Route: 048
     Dates: start: 20030902, end: 20040107
  9. SPECTAZOLE [Concomitant]
     Dates: start: 20001226
  10. DERMATOP [Concomitant]
     Dates: start: 20001226

REACTIONS (24)
  - ANXIETY [None]
  - BACK PAIN [None]
  - CHEILITIS [None]
  - CLOSTRIDIUM DIFFICILE TOXIN TEST [None]
  - CLOSTRIDIUM DIFFICILE TOXIN TEST POSITIVE [None]
  - COLITIS ULCERATIVE [None]
  - CROHN'S DISEASE [None]
  - DEPRESSION [None]
  - DRY EYE [None]
  - DYSPEPSIA [None]
  - ECZEMA [None]
  - EPISTAXIS [None]
  - HERPES SIMPLEX [None]
  - INFLAMMATORY BOWEL DISEASE [None]
  - LIP DRY [None]
  - MASS [None]
  - NASAL CONGESTION [None]
  - OCULAR HYPERAEMIA [None]
  - ONYCHOGRYPHOSIS [None]
  - PEPTIC ULCER [None]
  - PHARYNGOLARYNGEAL PAIN [None]
  - SKIN PAPILLOMA [None]
  - SKIN STRIAE [None]
  - SUICIDAL IDEATION [None]
